FAERS Safety Report 10047012 (Version 3)
Quarter: 2014Q2

REPORT INFORMATION
  Report Type: Spontaneous
  Country: JP (occurrence: None)
  Receive Date: 20140327
  Receipt Date: 20140421
  Transmission Date: 20141212
  Serious: Yes (Hospitalization, Other)
  Sender: FDA-Public Use
  Company Number: 2014041432

PATIENT
  Age: 53 Year
  Sex: Male

DRUGS (7)
  1. DESMOPRESSIN ACETATE [Suspect]
     Indication: DIABETES INSIPIDUS
     Dosage: (STOPPED 24-OCT-2012 NASAL), (START 1993; RECEIVED 20-OCT-2012-24OCT-2012 NASAL), (19-DEC-2012 NASAL)
  2. DESMOPRESSIN ACETATE [Suspect]
     Indication: HYPOPITUITARISM
     Dosage: (STOPPED 24-OCT-2012 NASAL), (START 1993; RECEIVED 20-OCT-2012-24OCT-2012 NASAL), (19-DEC-2012 NASAL)
  3. DESMOPRESSIN (DESMOPRESSIN) [Suspect]
     Indication: DIABETES INSIPIDUS
     Route: 048
  4. CORTRIL (HYDROCORTISONE) [Concomitant]
  5. DOGMATYL (SULPIRIDE) [Concomitant]
  6. ENARMON (TESTOSTERONE) [Concomitant]
  7. THYRADIN (THYROID) [Concomitant]

REACTIONS (14)
  - Drug resistance [None]
  - Hyponatraemia [None]
  - Diabetes insipidus [None]
  - Condition aggravated [None]
  - Generalised tonic-clonic seizure [None]
  - Drug ineffective [None]
  - Muscular weakness [None]
  - Fall [None]
  - Slow speech [None]
  - Muscular weakness [None]
  - Blood sodium increased [None]
  - Urine output decreased [None]
  - Polyuria [None]
  - Malaise [None]
